FAERS Safety Report 21680889 (Version 1)
Quarter: 2022Q4

REPORT INFORMATION
  Report Type: Spontaneous
  Country: US (occurrence: None)
  Receive Date: 20221202
  Receipt Date: 20221202
  Transmission Date: 20230112
  Serious: Yes (Hospitalization)
  Sender: FDA-Public Use
  Company Number: None

PATIENT
  Age: 55 Year
  Sex: Female
  Weight: 124.5 kg

DRUGS (1)
  1. TOPOTECAN [Suspect]
     Active Substance: TOPOTECAN HYDROCHLORIDE
     Dates: end: 20221013

REACTIONS (5)
  - Nausea [None]
  - Vomiting [None]
  - Retroperitoneal lymphadenopathy [None]
  - Portal vein stenosis [None]
  - Liver function test increased [None]

NARRATIVE: CASE EVENT DATE: 20221101
